FAERS Safety Report 15324134 (Version 2)
Quarter: 2018Q4

REPORT INFORMATION
  Report Type: Report from Study
  Country: None (occurrence: US)
  Receive Date: 20180828
  Receipt Date: 20181031
  Transmission Date: 20190204
  Serious: Yes (Hospitalization, Other)
  Sender: FDA-Public Use
  Company Number: US-ABBVIE-18K-163-2465450-00

PATIENT
  Age: 56 Year
  Sex: Female

DRUGS (1)
  1. HUMIRA [Suspect]
     Active Substance: ADALIMUMAB
     Indication: PSORIATIC ARTHROPATHY
     Route: 058
     Dates: end: 2018

REACTIONS (10)
  - Large intestine perforation [Unknown]
  - Psoriasis [Not Recovered/Not Resolved]
  - Platelet count decreased [Unknown]
  - Chronic obstructive pulmonary disease [Unknown]
  - Blood pH decreased [Unknown]
  - Alopecia [Unknown]
  - Intestinal obstruction [Unknown]
  - Hernia [Unknown]
  - Hypoxia [Unknown]
  - Psoriatic arthropathy [Unknown]

NARRATIVE: CASE EVENT DATE: 20180906
